FAERS Safety Report 7985198-0 (Version None)
Quarter: 2011Q4

REPORT INFORMATION
  Report Type: 
  Country: None (occurrence: None)
  Receive Date: 20111213
  Receipt Date: 20111130
  Transmission Date: 20120403
  Serious: Yes (Other)
  Sender: FDA-Public Use
  Company Number: US-1188855

PATIENT
  Sex: Male

DRUGS (3)
  1. PHISOHEX [Concomitant]
  2. BSS [Suspect]
     Indication: CATARACT OPERATION
     Dosage: (INTRAOCULAR)
     Route: 031
     Dates: start: 20110919, end: 20110919
  3. CEFUROXIME [Concomitant]

REACTIONS (3)
  - EYE INFECTION [None]
  - VISUAL ACUITY REDUCED [None]
  - EYE OEDEMA [None]
